FAERS Safety Report 6903580-7 (Version None)
Quarter: 2010Q3

REPORT INFORMATION
  Report Type: 
  Country: None (occurrence: None)
  Receive Date: 20100803
  Receipt Date: 20081101
  Transmission Date: 20110219
  Serious: Yes (Other)
  Sender: FDA-Public Use
  Company Number: US-PFIZER INC-2008092497

PATIENT
  Sex: Male
  Weight: 81.6 kg

DRUGS (4)
  1. LYRICA [Suspect]
     Indication: ILL-DEFINED DISORDER
     Dates: start: 20060101
  2. WELLBUTRIN [Interacting]
     Indication: SMOKING CESSATION THERAPY
  3. OXYCODONE [Concomitant]
     Indication: BACK INJURY
  4. DRUG, UNSPECIFIED [Concomitant]

REACTIONS (7)
  - DIZZINESS [None]
  - DRUG INTERACTION [None]
  - FEELING ABNORMAL [None]
  - HALLUCINATION, VISUAL [None]
  - MEMORY IMPAIRMENT [None]
  - OEDEMA PERIPHERAL [None]
  - TREMOR [None]
